FAERS Safety Report 18382589 (Version 2)
Quarter: 2021Q2

REPORT INFORMATION
  Report Type: Spontaneous
  Country: CA (occurrence: CA)
  Receive Date: 20201014
  Receipt Date: 20210628
  Transmission Date: 20210717
  Serious: Yes (Other)
  Sender: FDA-Public Use
  Company Number: CA-SAMSUNG BIOEPIS-SB-2020-30858

PATIENT
  Age: 86 Year
  Sex: Male

DRUGS (1)
  1. INFLIXIMAB [Suspect]
     Active Substance: INFLIXIMAB
     Indication: COLITIS ULCERATIVE
     Route: 042

REACTIONS (5)
  - Neoplasm malignant [Unknown]
  - Incision site erythema [Unknown]
  - Inappropriate schedule of product administration [Unknown]
  - Squamous cell carcinoma [Unknown]
  - Off label use [Unknown]
